FAERS Safety Report 23351671 (Version 1)
Quarter: 2023Q4

REPORT INFORMATION
  Report Type: Spontaneous
  Country: US (occurrence: None)
  Receive Date: 20231229
  Receipt Date: 20231229
  Transmission Date: 20240110
  Serious: Yes (unspecified)
  Sender: FDA-Public Use
  Company Number: None

PATIENT
  Age: 67 Year
  Sex: Female

DRUGS (1)
  1. KISQALI [Suspect]
     Active Substance: RIBOCICLIB
     Indication: Breast cancer female
     Dosage: OTHER FREQUENCY : QD X21 DAYS;?

REACTIONS (6)
  - Thrombosis [None]
  - Peripheral swelling [None]
  - Fatigue [None]
  - Nausea [None]
  - Constipation [None]
  - Contusion [None]
